FAERS Safety Report 18511788 (Version 1)
Quarter: 2020Q4

REPORT INFORMATION
  Report Type: Spontaneous
  Country: US (occurrence: US)
  Receive Date: 20201117
  Receipt Date: 20201117
  Transmission Date: 20210114
  Serious: No
  Sender: FDA-Public Use
  Company Number: US-BAYER-2020-245709

PATIENT
  Age: 79 Year
  Sex: Female

DRUGS (2)
  1. CLARITIN [Suspect]
     Active Substance: LORATADINE
     Indication: BRONCHIECTASIS
     Dosage: TWICE THE DOSAGE
     Route: 065
  2. CLARITIN [Suspect]
     Active Substance: LORATADINE
     Indication: COUGH

REACTIONS (2)
  - Pruritus [None]
  - Product use in unapproved indication [Unknown]
